FAERS Safety Report 18986244 (Version 1)
Quarter: 2021Q1

REPORT INFORMATION
  Report Type: Spontaneous
  Country: US (occurrence: US)
  Receive Date: 20210308
  Receipt Date: 20210308
  Transmission Date: 20210420
  Serious: Yes (Hospitalization)
  Sender: FDA-Public Use
  Company Number: None

PATIENT
  Age: 61 Year
  Sex: Female

DRUGS (21)
  1. TRAMADOL HCL [Concomitant]
     Active Substance: TRAMADOL HYDROCHLORIDE
  2. ASPIRIN EC [Concomitant]
     Active Substance: ASPIRIN
  3. GABAPENTIN. [Concomitant]
     Active Substance: GABAPENTIN
  4. METOPROLOL ER [Concomitant]
     Active Substance: METOPROLOL SUCCINATE
  5. TOPAMAX [Concomitant]
     Active Substance: TOPIRAMATE
  6. ESBRIET [Suspect]
     Active Substance: PIRFENIDONE
     Indication: IDIOPATHIC PULMONARY FIBROSIS
     Route: 048
     Dates: start: 20151001
  7. ABILIFY [Concomitant]
     Active Substance: ARIPIPRAZOLE
  8. FAMOTIDINE. [Concomitant]
     Active Substance: FAMOTIDINE
  9. SIPRONOLACT [Concomitant]
  10. TIZANIDINE. [Concomitant]
     Active Substance: TIZANIDINE
  11. AMBIEN [Concomitant]
     Active Substance: ZOLPIDEM TARTRATE
  12. AMLODIPINE [Concomitant]
     Active Substance: AMLODIPINE BESYLATE
  13. FERREX 150 [Concomitant]
  14. FERROUS SULF [Concomitant]
     Active Substance: FERROUS SULFATE
  15. OMEPRAZOLE. [Concomitant]
     Active Substance: OMEPRAZOLE
  16. PRAVASTATIN. [Concomitant]
     Active Substance: PRAVASTATIN
  17. ADIPEX?P [Concomitant]
     Active Substance: PHENTERMINE HYDROCHLORIDE
  18. METFORMIN [Concomitant]
     Active Substance: METFORMIN HYDROCHLORIDE
  19. WARFARIN [Concomitant]
     Active Substance: WARFARIN
  20. ROPINIROLE. [Concomitant]
     Active Substance: ROPINIROLE
  21. VITAMIN D3 [Concomitant]
     Active Substance: CHOLECALCIFEROL

REACTIONS (3)
  - Lung disorder [None]
  - Illness [None]
  - Blood glucose increased [None]

NARRATIVE: CASE EVENT DATE: 20210228
